FAERS Safety Report 11718713 (Version 1)
Quarter: 2015Q4

REPORT INFORMATION
  Report Type: Spontaneous
  Country: US (occurrence: None)
  Receive Date: 20151109
  Receipt Date: 20151109
  Transmission Date: 20160304
  Serious: No
  Sender: FDA-Public Use
  Company Number: None

PATIENT
  Sex: Male

DRUGS (2)
  1. TOBRAMYCIN 300MG/5ML ACORN [Suspect]
     Active Substance: TOBRAMYCIN
     Dosage: 300MG/5ML BID INHALATION?
     Route: 055
     Dates: start: 20150129
  2. TOBI [Suspect]
     Active Substance: TOBRAMYCIN
     Indication: CYSTIC FIBROSIS
     Dosage: 300MG/5ML BID INHALATION
     Route: 055
     Dates: start: 20150122

REACTIONS (1)
  - Hospitalisation [None]
